FAERS Safety Report 7583470-X (Version None)
Quarter: 2011Q2

REPORT INFORMATION
  Report Type: 
  Country: None (occurrence: None)
  Receive Date: 20110630
  Receipt Date: 20110627
  Transmission Date: 20111010
  Serious: Yes (Hospitalization)
  Sender: FDA-Public Use
  Company Number: NO-ROCHE-722313

PATIENT
  Sex: Female
  Weight: 55.3 kg

DRUGS (3)
  1. BEVACIZUMAB [Suspect]
     Dosage: LAST DOSE PRIOR TO SAE : 09 AUGUST 2010.
     Route: 042
     Dates: start: 20091204
  2. CARBOPLATIN [Suspect]
     Dosage: LAST DOSE PRIOR TO SAE ON 23 MARCH 2010.
     Route: 042
     Dates: start: 20091204, end: 20100323
  3. PACLITAXEL [Suspect]
     Dosage: LAST DOSE PRIOR TO SAE ON 06 APRIL 2010.
     Route: 042
     Dates: start: 20091204

REACTIONS (1)
  - PNEUMONITIS [None]
